FAERS Safety Report 15340240 (Version 1)
Quarter: 2018Q3

REPORT INFORMATION
  Report Type: Report from Study
  Country: JP (occurrence: JP)
  Receive Date: 20180831
  Receipt Date: 20180831
  Transmission Date: 20181010
  Serious: Yes (Hospitalization)
  Sender: FDA-Public Use
  Company Number: JP-PFIZER INC-2018346131

PATIENT
  Age: 71 Year
  Sex: Female
  Weight: 64 kg

DRUGS (18)
  1. PREDNISOLONE. [Concomitant]
     Active Substance: PREDNISOLONE
     Dosage: 2.5 MG, DAILY
     Dates: end: 20170210
  2. XELJANZ [Suspect]
     Active Substance: TOFACITINIB CITRATE
     Indication: RHEUMATOID ARTHRITIS
     Dosage: 5 MG, 2X/DAY
     Route: 048
     Dates: start: 20170210, end: 20170515
  3. EBUTOL [ETHAMBUTOL] [Concomitant]
     Dosage: UNK
     Route: 048
     Dates: start: 20171013
  4. CLARITH [Concomitant]
     Active Substance: CLARITHROMYCIN
     Route: 048
  5. PREDNISOLONE. [Concomitant]
     Active Substance: PREDNISOLONE
     Dosage: 2 MG, DAILY
     Dates: start: 20170210, end: 20170310
  6. MAGMITT [Concomitant]
     Active Substance: MAGNESIUM OXIDE
     Dosage: UNK
     Route: 048
     Dates: start: 20170718
  7. BONOTEO [Concomitant]
     Active Substance: MINODRONIC ACID
     Route: 048
  8. MOHRUS [Concomitant]
     Active Substance: KETOPROFEN
     Route: 062
  9. TULOBUTEROL [Concomitant]
     Active Substance: TULOBUTEROL
     Dosage: UNK
     Route: 062
     Dates: start: 20170718
  10. RIFAMPICIN [Concomitant]
     Active Substance: RIFAMPIN
     Dosage: UNK
     Route: 048
     Dates: start: 20171013
  11. BAKTAR [Concomitant]
     Active Substance: SULFAMETHOXAZOLE\TRIMETHOPRIM
     Indication: ANTIFUNGAL PROPHYLAXIS
     Dosage: UNK
     Route: 048
  12. XELJANZ [Suspect]
     Active Substance: TOFACITINIB CITRATE
     Dosage: 5 MG, 2X/DAY
     Route: 048
     Dates: start: 20170526, end: 20171026
  13. ALFAROL [Concomitant]
     Active Substance: ALFACALCIDOL
     Route: 048
  14. MUCODAIN [Concomitant]
     Route: 048
  15. CODEINE PHOSPHATE [Concomitant]
     Active Substance: CODEINE PHOSPHATE
     Route: 048
  16. PREDNISOLONE. [Concomitant]
     Active Substance: PREDNISOLONE
     Dosage: 1 MG, DAILY
     Dates: start: 20170310
  17. NEXIUM [ESOMEPRAZOLE MAGNESIUM] [Concomitant]
     Route: 048
  18. FLOMOX [CEFCAPENE PIVOXIL HYDROCHLORIDE] [Concomitant]
     Dosage: UNK
     Route: 048
     Dates: start: 20170718

REACTIONS (1)
  - Traumatic lung injury [Recovering/Resolving]

NARRATIVE: CASE EVENT DATE: 20171013
